FAERS Safety Report 7885928 (Version 7)
Quarter: 2018Q4

REPORT INFORMATION
  Report Type: Spontaneous
  Country: JP (occurrence: JP)
  Receive Date: 20110405
  Receipt Date: 20181129
  Transmission Date: 20190205
  Serious: Yes (Hospitalization, Other)
  Sender: FDA-Public Use
  Company Number: PHHY2011JP24150

PATIENT
  Age: 61 Year
  Sex: Female

DRUGS (8)
  1. AREDIA [Suspect]
     Active Substance: PAMIDRONATE DISODIUM
     Indication: METASTASES TO BONE
     Dosage: 90 MG, UNK
     Route: 065
     Dates: start: 20040924, end: 20060919
  2. ARIMIDEX [Concomitant]
     Active Substance: ANASTROZOLE
     Indication: BREAST CANCER
     Dosage: 1 MG, UNK
     Route: 048
     Dates: start: 20040618, end: 20050912
  3. TOREMIFENE [Concomitant]
     Active Substance: TOREMIFENE
     Indication: BREAST CANCER
     Dosage: 120 MG, UNK
     Route: 065
     Dates: start: 20050913, end: 20051015
  4. ZOMETA [Suspect]
     Active Substance: ZOLEDRONIC ACID
     Indication: METASTASES TO BONE
     Dosage: 4 MG, QMO
     Route: 065
     Dates: start: 20061017, end: 20090911
  5. HYSRON [Concomitant]
     Active Substance: MEDROXYPROGESTERONE
     Indication: BREAST CANCER
     Dosage: 800 MG, UNK
     Route: 065
     Dates: start: 20051016
  6. FURTULON [Concomitant]
     Active Substance: DOXIFLURIDINE
     Indication: BREAST CANCER
     Dosage: 800 MG, UNK
     Route: 065
     Dates: start: 20051016
  7. AREDIA [Suspect]
     Active Substance: PAMIDRONATE DISODIUM
     Dosage: 90 MG, QD
     Route: 041
     Dates: start: 20040924, end: 20060919
  8. ENDOXAN [Concomitant]
     Active Substance: CYCLOPHOSPHAMIDE
     Indication: BREAST CANCER
     Dosage: 150 MG, UNK
     Route: 065
     Dates: start: 20051016

REACTIONS (4)
  - Fall [Unknown]
  - Femur fracture [Recovering/Resolving]
  - Bone density decreased [Not Recovered/Not Resolved]
  - Arthralgia [Recovering/Resolving]

NARRATIVE: CASE EVENT DATE: 20090917
